FAERS Safety Report 6267667-7 (Version None)
Quarter: 2009Q3

REPORT INFORMATION
  Report Type: 
  Country: None (occurrence: None)
  Receive Date: 20090714
  Receipt Date: 20090708
  Transmission Date: 20100115
  Serious: Yes (Death, Hospitalization)
  Sender: FDA-Public Use
  Company Number: PHHY2009JP28209

PATIENT
  Age: 23 Year
  Sex: Male

DRUGS (6)
  1. CYCLOSPORINE [Suspect]
     Indication: LANGERHANS' CELL GRANULOMATOSIS
     Dosage: 400 MG DAILY
  2. PREDNISOLONE [Concomitant]
     Dosage: 30-60 MG/DAY
  3. METHYLPREDNISOLONE [Concomitant]
     Dosage: 1000 MG
  4. VINBLASTINE [Concomitant]
     Dosage: 5 MG/WEEK
  5. SOBUZOXANE [Concomitant]
     Dosage: 1200-2000 MG/WEEK
  6. ETOPOSIDE [Concomitant]
     Dosage: 25 MG

REACTIONS (9)
  - LANGERHANS' CELL GRANULOMATOSIS [None]
  - LYMPHADENOPATHY [None]
  - MALIGNANT FIBROUS HISTIOCYTOMA [None]
  - MUCORMYCOSIS [None]
  - NEUTROPENIA [None]
  - PELVIC PAIN [None]
  - PNEUMONIA [None]
  - PYREXIA [None]
  - RETROPERITONEAL NEOPLASM [None]
